FAERS Safety Report 17077816 (Version 1)
Quarter: 2019Q4

REPORT INFORMATION
  Report Type: Report from Study
  Country: FR (occurrence: FR)
  Receive Date: 20191126
  Receipt Date: 20191126
  Transmission Date: 20200122
  Serious: Yes (Other)
  Sender: FDA-Public Use
  Company Number: PHHY2017FR112672

PATIENT
  Age: 76 Year
  Sex: Female

DRUGS (7)
  1. AFINITOR [Suspect]
     Active Substance: EVEROLIMUS
     Indication: PANCREATIC NEUROENDOCRINE TUMOUR METASTATIC
     Dosage: UNK
     Route: 065
  2. SANDOSTATINE [Suspect]
     Active Substance: OCTREOTIDE ACETATE
     Indication: PRODUCT USED FOR UNKNOWN INDICATION
     Dosage: 30 MG, QMO
     Route: 065
     Dates: start: 201411
  3. TEMODAL [Concomitant]
     Active Substance: TEMOZOLOMIDE
     Indication: PRODUCT USED FOR UNKNOWN INDICATION
     Dosage: 300 MG, EVERY 5 DAYS MONTHY
     Route: 065
     Dates: start: 20160127, end: 201702
  4. XELODA [Concomitant]
     Active Substance: CAPECITABINE
     Indication: PRODUCT USED FOR UNKNOWN INDICATION
     Dosage: 1150 MG, 14 DAYS MONTHLY
     Route: 065
     Dates: start: 20160118, end: 201702
  5. XELODA [Concomitant]
     Active Substance: CAPECITABINE
     Dosage: 1150 MG, 14 DAYS MONTHLY
     Route: 065
     Dates: end: 20170115
  6. TEMODAL [Concomitant]
     Active Substance: TEMOZOLOMIDE
     Dosage: 300 MG, EVERY 5 DAYS MONTHY
     Route: 065
     Dates: end: 20170115
  7. ELOXATIN [Concomitant]
     Active Substance: OXALIPLATIN
     Indication: PRODUCT USED FOR UNKNOWN INDICATION
     Dosage: UNK
     Route: 065
     Dates: start: 20180305

REACTIONS (1)
  - Thrombocytopenia [Recovered/Resolved]

NARRATIVE: CASE EVENT DATE: 20160307
